FAERS Safety Report 7714064-0 (Version None)
Quarter: 2011Q3

REPORT INFORMATION
  Report Type: 
  Country: None (occurrence: None)
  Receive Date: 20110826
  Receipt Date: 20110817
  Transmission Date: 20111222
  Serious: Yes (Other)
  Sender: FDA-Public Use
  Company Number: US-ASTRAZENECA-2011SE49491

PATIENT
  Age: 78 Year
  Sex: Female
  Weight: 93 kg

DRUGS (3)
  1. FASLODEX [Suspect]
     Indication: BREAST CANCER
     Route: 030
     Dates: start: 20110401
  2. GLYDERIDE [Concomitant]
     Indication: DIABETES MELLITUS
  3. CIPROFLOXACIN [Concomitant]
     Indication: CYSTITIS

REACTIONS (6)
  - HAIR TEXTURE ABNORMAL [None]
  - BACK PAIN [None]
  - HEARING IMPAIRED [None]
  - MYALGIA [None]
  - SPINAL CORD NEOPLASM [None]
  - ALOPECIA [None]
